FAERS Safety Report 12809678 (Version 1)
Quarter: 2016Q4

REPORT INFORMATION
  Report Type: Spontaneous
  Country: US (occurrence: US)
  Receive Date: 20161005
  Receipt Date: 20161005
  Transmission Date: 20170207
  Serious: No
  Sender: FDA-Public Use
  Company Number: ALCN2016US006765

PATIENT
  Age: 15 Year
  Sex: Male

DRUGS (1)
  1. ZADITOR [Suspect]
     Active Substance: KETOTIFEN FUMARATE
     Indication: EYE ALLERGY
     Dosage: 1 GTT, BID
     Route: 047
     Dates: start: 20161002, end: 20161003

REACTIONS (2)
  - Ocular hyperaemia [Recovered/Resolved]
  - Eye irritation [Recovered/Resolved]

NARRATIVE: CASE EVENT DATE: 20161002
